FAERS Safety Report 9400120 (Version 2)
Quarter: 2013Q3

REPORT INFORMATION
  Report Type: Spontaneous
  Country: DE (occurrence: DE)
  Receive Date: 20130715
  Receipt Date: 20130726
  Transmission Date: 20140515
  Serious: Yes (Other)
  Sender: FDA-Public Use
  Company Number: DE-UCBSA-091455

PATIENT
  Sex: Male

DRUGS (5)
  1. KEPPRA [Suspect]
  2. MARCUMAR [Concomitant]
  3. METOPROLOL [Concomitant]
  4. FALITHROM [Concomitant]
  5. RAMILICH [Concomitant]

REACTIONS (1)
  - Thrombocytopenia [Unknown]
